FAERS Safety Report 15726672 (Version 1)
Quarter: 2018Q4

REPORT INFORMATION
  Report Type: Spontaneous
  Country: US (occurrence: US)
  Receive Date: 20181217
  Receipt Date: 20181217
  Transmission Date: 20190205
  Serious: No
  Sender: FDA-Public Use
  Company Number: US-NOVOPROD-610741

PATIENT
  Age: 68 Year
  Sex: Male

DRUGS (1)
  1. LEVEMIR [Suspect]
     Active Substance: INSULIN DETEMIR
     Indication: TYPE 1 DIABETES MELLITUS
     Dosage: 20 U, BID
     Route: 058

REACTIONS (3)
  - Dizziness [Not Recovered/Not Resolved]
  - Device failure [Unknown]
  - Product dose omission [Unknown]

NARRATIVE: CASE EVENT DATE: 20180709
